FAERS Safety Report 8098743-4 (Version None)
Quarter: 2012Q1

REPORT INFORMATION
  Report Type: 
  Country: None (occurrence: None)
  Receive Date: 20120131
  Receipt Date: 20120121
  Transmission Date: 20120608
  Serious: Yes (Hospitalization, Other)
  Sender: FDA-Public Use
  Company Number: US-ACTELION-A-NJ2012-60096

PATIENT

DRUGS (10)
  1. PROTONIX [Concomitant]
  2. ASMANEX TWISTHALER [Concomitant]
  3. ZYRTEC [Concomitant]
  4. CALCIUM WITH VITAMIN D [Concomitant]
  5. TRACLEER [Suspect]
     Indication: PULMONARY ARTERIAL HYPERTENSION
     Dosage: 125 MG, BID
     Route: 048
     Dates: start: 20041201
  6. SINGULAIR [Concomitant]
  7. REMODULIN [Concomitant]
  8. OXYGEN [Concomitant]
  9. SILDENAFIL [Concomitant]
  10. WARFARIN SODIUM [Concomitant]

REACTIONS (8)
  - HEPATOSPLENOMEGALY [None]
  - CARDIAC FAILURE [None]
  - HEPATIC CONGESTION [None]
  - PORTAL HYPERTENSION [None]
  - VOMITING [None]
  - ABDOMINAL PAIN [None]
  - NAUSEA [None]
  - DECREASED APPETITE [None]
